FAERS Safety Report 13389389 (Version 1)
Quarter: 2017Q1

REPORT INFORMATION
  Report Type: Spontaneous
  Country: US (occurrence: US)
  Receive Date: 20170331
  Receipt Date: 20170331
  Transmission Date: 20170429
  Serious: No
  Sender: FDA-Public Use
  Company Number: US-ELI_LILLY_AND_COMPANY-US201703011649

PATIENT
  Sex: Female

DRUGS (4)
  1. TALTZ [Suspect]
     Active Substance: IXEKIZUMAB
     Indication: PSORIASIS
     Dosage: 80 MG, UNKNOWN
     Route: 058
     Dates: start: 20160912
  2. TALTZ [Suspect]
     Active Substance: IXEKIZUMAB
  3. TALTZ [Suspect]
     Active Substance: IXEKIZUMAB
  4. TALTZ [Suspect]
     Active Substance: IXEKIZUMAB

REACTIONS (1)
  - Blood glucose increased [Unknown]
